FAERS Safety Report 4393574-0 (Version None)
Quarter: 2004Q3

REPORT INFORMATION
  Report Type: 
  Country: None (occurrence: None)
  Receive Date: 20040709
  Receipt Date: 20040526
  Transmission Date: 20050211
  Serious: Yes (Disabling)
  Sender: FDA-Public Use
  Company Number: JP-ROCHE-369146

PATIENT
  Age: 68 Year
  Sex: Female
  Weight: 42.1 kg

DRUGS (5)
  1. PEGASYS [Suspect]
     Indication: HEPATITIS C
     Route: 058
     Dates: start: 20040407, end: 20040519
  2. DIGOSIN [Concomitant]
     Indication: ATRIAL FIBRILLATION
     Route: 048
  3. CYANOCOBALAMIN [Concomitant]
     Indication: NEURALGIA
     Route: 048
     Dates: start: 20011201
  4. JUVELA [Concomitant]
     Indication: NEURALGIA
     Route: 048
     Dates: start: 20040428
  5. ASPIRIN [Concomitant]
     Indication: ATRIAL FIBRILLATION
     Dosage: DRUG NAME REPORTED AS BAYASPIRIN
     Route: 048
     Dates: start: 20040414

REACTIONS (4)
  - AMNESIA [None]
  - DIZZINESS [None]
  - FALL [None]
  - VERTIGO [None]
